FAERS Safety Report 8619342-9 (Version None)
Quarter: 2012Q3

REPORT INFORMATION
  Report Type: 
  Country: None (occurrence: None)
  Receive Date: 20120824
  Receipt Date: 20120820
  Transmission Date: 20120928
  Serious: Yes (Hospitalization, Other)
  Sender: FDA-Public Use
  Company Number: BR-PFIZER INC-2012158114

PATIENT
  Age: 72 Year
  Sex: Male

DRUGS (10)
  1. FINASTERIDE [Concomitant]
     Dosage: UNK
  2. SUTENT [Suspect]
     Indication: RENAL CELL CARCINOMA
     Dosage: 50 MG, 1X/DAY / CYCLE 4X2
     Route: 048
     Dates: start: 20120531
  3. METOPROLOL SUCCINATE [Concomitant]
     Dosage: UNK
     Dates: end: 20120101
  4. FUROSEMIDE [Concomitant]
     Dosage: UNK
  5. ATLANSIL [Concomitant]
     Dosage: UNK
     Dates: end: 20120101
  6. CARVEDILOL [Concomitant]
     Dosage: UNK
  7. SUTENT [Suspect]
     Dosage: 37.5 MG, 1X/DAY / CYCLE 4X2
     Route: 048
     Dates: end: 20120819
  8. PHENYTOIN [Concomitant]
     Dosage: 100 MG, 3X/DAY
  9. LASIX [Concomitant]
     Dosage: UNK
  10. TAMSULOSIN HCL [Concomitant]
     Dosage: UNK

REACTIONS (8)
  - URINARY TRACT INFECTION [None]
  - FEELING ABNORMAL [None]
  - BLOOD PRESSURE INCREASED [None]
  - VOMITING [None]
  - TESTICULAR DISORDER [None]
  - WOUND [None]
  - CONVULSION [None]
  - ORAL MUCOSAL ERYTHEMA [None]
